FAERS Safety Report 25549977 (Version 1)
Quarter: 2025Q3

REPORT INFORMATION
  Report Type: Spontaneous
  Country: US (occurrence: US)
  Receive Date: 20250714
  Receipt Date: 20250714
  Transmission Date: 20251021
  Serious: No
  Sender: NOVO NORDISK
  Company Number: US-NOVOPROD-1431487

PATIENT
  Age: 86 Year
  Sex: Male

DRUGS (3)
  1. SEMAGLUTIDE [Suspect]
     Active Substance: SEMAGLUTIDE
     Indication: Dementia
     Route: 048
     Dates: start: 2022, end: 202504
  2. SEMAGLUTIDE [Suspect]
     Active Substance: SEMAGLUTIDE
     Route: 048
     Dates: start: 2022, end: 202504
  3. SEMAGLUTIDE [Suspect]
     Active Substance: SEMAGLUTIDE
     Route: 048
     Dates: start: 2022, end: 202504

REACTIONS (3)
  - Weight decreased [Unknown]
  - Gastrointestinal disorder [Recovered/Resolved]
  - Product use in unapproved indication [Unknown]

NARRATIVE: CASE EVENT DATE: 20230101
